FAERS Safety Report 4622697-3 (Version None)
Quarter: 2005Q1

REPORT INFORMATION
  Report Type: 
  Country: None (occurrence: None)
  Receive Date: 20050329
  Receipt Date: 20050329
  Transmission Date: 20050727
  Serious: Yes (Hospitalization)
  Sender: FDA-Public Use
  Company Number: None

PATIENT
  Age: 84 Year
  Sex: Female
  Weight: 71.3 kg

DRUGS (6)
  1. REMINYL [Suspect]
     Indication: DEMENTIA ALZHEIMER'S TYPE
     Dosage: ORAL
     Route: 048
     Dates: start: 20050321, end: 20050323
  2. NORVASC [Concomitant]
  3. HYZAAR [Concomitant]
  4. LIPITOR [Concomitant]
  5. NEMENDA [Concomitant]
  6. ASPRIN [Concomitant]

REACTIONS (5)
  - DRUG HYPERSENSITIVITY [None]
  - DYSPHONIA [None]
  - EYE OEDEMA [None]
  - FACE OEDEMA [None]
  - NAUSEA [None]
